FAERS Safety Report 23772039 (Version 1)
Quarter: 2024Q2

REPORT INFORMATION
  Report Type: Other
  Country: IT (occurrence: IT)
  Receive Date: 20240423
  Receipt Date: 20240423
  Transmission Date: 20240715
  Serious: Yes (Other)
  Sender: FDA-Public Use
  Company Number: None

PATIENT

DRUGS (4)
  1. TRASTUZUMAB [Suspect]
     Active Substance: TRASTUZUMAB
     Indication: Triple positive breast cancer
     Dosage: 12 MILLIGRAM/KILOGRAM, CYCLICAL EVERY THREE WEEKS FOR FOUR CYCLES
     Route: 065
     Dates: start: 201201, end: 2012
  2. TRASTUZUMAB [Suspect]
     Active Substance: TRASTUZUMAB
     Indication: Invasive ductal breast carcinoma
     Dosage: 16 MILLIGRAM/KILOGRAM, CYCLICAL EVERY THREE WEEKS FOR FOUR CYCLES
     Route: 065
     Dates: start: 201201, end: 2012
  3. DOCETAXEL [Suspect]
     Active Substance: DOCETAXEL\DOCETAXEL ANHYDROUS
     Indication: Triple positive breast cancer
     Dosage: 200 MILLIGRAM/SQ. METER, CYCLICAL EVERY THREE WEEKS FOR FOUR CYCLES
     Route: 065
     Dates: start: 201201, end: 2012
  4. DOCETAXEL [Suspect]
     Active Substance: DOCETAXEL\DOCETAXEL ANHYDROUS
     Indication: Invasive ductal breast carcinoma

REACTIONS (2)
  - Hypertransaminasaemia [Recovering/Resolving]
  - Hepatotoxicity [Recovering/Resolving]

NARRATIVE: CASE EVENT DATE: 20120101
